FAERS Safety Report 6373177-9 (Version None)
Quarter: 2009Q3

REPORT INFORMATION
  Report Type: 
  Country: None (occurrence: None)
  Receive Date: 20090924
  Receipt Date: 20090105
  Transmission Date: 20100115
  Serious: No
  Sender: FDA-Public Use
  Company Number: US-ASTRAZENECA-2009UW00212

PATIENT
  Age: 14698 Day
  Sex: Female

DRUGS (2)
  1. SEROQUEL [Suspect]
     Route: 048
     Dates: start: 20050105
  2. WELLBUTRIN [Concomitant]

REACTIONS (3)
  - DEPRESSION [None]
  - HYPERSOMNIA [None]
  - STRESS [None]
